FAERS Safety Report 14258888 (Version 1)
Quarter: 2017Q4

REPORT INFORMATION
  Report Type: Spontaneous
  Country: US (occurrence: None)
  Receive Date: 20171207
  Receipt Date: 20171207
  Transmission Date: 20180321
  Serious: Yes (Hospitalization)
  Sender: FDA-Public Use
  Company Number: None

PATIENT
  Age: 86 Year
  Sex: Female
  Weight: 56.5 kg

DRUGS (3)
  1. CARBOPLATIN. [Suspect]
     Active Substance: CARBOPLATIN
     Dates: end: 20171117
  2. TAXOL [Concomitant]
     Active Substance: PACLITAXEL
     Dates: end: 20171117
  3. METFORMIN HYDROCHLORIDE. [Concomitant]
     Active Substance: METFORMIN HYDROCHLORIDE
     Dates: end: 20171120

REACTIONS (16)
  - Hypotension [None]
  - Fatigue [None]
  - Blood pressure increased [None]
  - Infusion related reaction [None]
  - Haemoglobin decreased [None]
  - Wheezing [None]
  - Rhonchi [None]
  - Dyspnoea [None]
  - Transfusion reaction [None]
  - Overdose [None]
  - Neuropathy peripheral [None]
  - Blood potassium increased [None]
  - Delirium [None]
  - Electrocardiogram ST-T change [None]
  - Condition aggravated [None]
  - Blood sodium decreased [None]

NARRATIVE: CASE EVENT DATE: 20171120
